FAERS Safety Report 4923304-2 (Version None)
Quarter: 2006Q1

REPORT INFORMATION
  Report Type: 
  Country: None (occurrence: None)
  Receive Date: 20060223
  Receipt Date: 20060223
  Transmission Date: 20060701
  Serious: Yes (Hospitalization)
  Sender: FDA-Public Use
  Company Number: None

PATIENT
  Sex: Male

DRUGS (10)
  1. WARFARIN  5 MG [Suspect]
     Indication: ARTERIAL BYPASS OPERATION
     Dosage: 5  MG DAILY PO
     Route: 048
     Dates: start: 20051123, end: 20051128
  2. ENOXAPARIN SODIUM [Suspect]
     Indication: ARTERIAL BYPASS OPERATION
     Dosage: 80 MG BID SQ
     Route: 058
     Dates: start: 20051123, end: 20051128
  3. ASPIRIN [Concomitant]
  4. NICOTINE [Concomitant]
  5. BUPROPION HCL [Concomitant]
  6. GEMFIBROZIL [Concomitant]
  7. ALPRAZOLAM [Concomitant]
  8. CLONIDINE [Concomitant]
  9. SIMVASTATIN [Concomitant]
  10. TRIAMTERENE AND HYDROCHLOROTHIAZIDE [Concomitant]

REACTIONS (2)
  - POST PROCEDURAL HAEMATOMA [None]
  - SCROTAL HAEMATOMA [None]
